FAERS Safety Report 15659292 (Version 2)
Quarter: 2019Q1

REPORT INFORMATION
  Report Type: Report from Study
  Country: IL (occurrence: IL)
  Receive Date: 20181127
  Receipt Date: 20190310
  Transmission Date: 20190417
  Serious: Yes (Hospitalization, Other)
  Sender: FDA-Public Use
  Company Number: IL-TEVA-2018-IL-980039

PATIENT
  Age: 76 Year
  Sex: Male
  Weight: 61.7 kg

DRUGS (19)
  1. CARBOPLATIN. [Suspect]
     Active Substance: CARBOPLATIN
     Indication: NON-SMALL CELL LUNG CANCER METASTATIC
     Dosage: AREA UNDER THE CURVE (AUC) 5, Q3W FOR 4 CYCLES; INTRAVENOUS
     Route: 042
     Dates: start: 20180813, end: 20180904
  2. PEMBROLIZUMAB. [Suspect]
     Active Substance: PEMBROLIZUMAB
     Dosage: 9.5238 MILLIGRAM DAILY; 200 MILLIGRAM, G3W;INTRAVENOUS
     Route: 042
     Dates: start: 20181002, end: 20181002
  3. CYANOCOBALAMIN. [Concomitant]
     Active Substance: CYANOCOBALAMIN
     Dates: start: 20180719
  4. ENSURE [Concomitant]
     Active Substance: AMINO ACIDS\DEXTROSE\ELECTROLYTES NOS\SOYBEAN OIL\VITAMINS
     Dates: start: 20180715
  5. LOSARTAN POTASSIUM. [Concomitant]
     Active Substance: LOSARTAN POTASSIUM
     Dates: start: 20170910
  6. PEMBROLIZUMAB. [Suspect]
     Active Substance: PEMBROLIZUMAB
     Indication: NON-SMALL CELL LUNG CANCER METASTATIC
     Dosage: 200 MILLIGRAM, G3W;INTRAVENOUS
     Route: 042
     Dates: start: 20180813, end: 20180904
  7. PEMETREXED. [Suspect]
     Active Substance: PEMETREXED
     Indication: NON-SMALL CELL LUNG CANCER METASTATIC
     Dosage: Q3W; INTRAVENOUS
     Route: 042
     Dates: start: 20180813, end: 20180904
  8. FENTANYL. [Concomitant]
     Active Substance: FENTANYL
     Dates: start: 20180706
  9. JARDIANCE DUO [Concomitant]
     Active Substance: EMPAGLIFLOZIN\METFORMIN HYDROCHLORIDE
     Dates: start: 20170724
  10. DEXAMETHASONE. [Concomitant]
     Active Substance: DEXAMETHASONE
     Dates: start: 20180724
  11. PEMETREXED. [Suspect]
     Active Substance: PEMETREXED
     Dosage: 23.8095 MG/M2 DAILY; Q3W; INTRAVENOUS
     Route: 042
     Dates: start: 19781002, end: 19781002
  12. OMEPRAZOLE. [Concomitant]
     Active Substance: OMEPRAZOLE
     Dates: start: 20120314
  13. MIRTAZAPINE. [Concomitant]
     Active Substance: MIRTAZAPINE
     Dates: start: 201809
  14. DEXACORT [Concomitant]
     Active Substance: DEXAMETHASONE SODIUM PHOSPHATE
     Dates: start: 20181002, end: 20181002
  15. CARBOPLATIN. [Suspect]
     Active Substance: CARBOPLATIN
     Dosage: AREA UNDER THE CURVE (AUC) 5, Q3W FOR 4 CYCLES; INTRAVENOUS
     Route: 042
     Dates: start: 20181002, end: 20181002
  16. FUROSEMIDE. [Concomitant]
     Active Substance: FUROSEMIDE
     Dates: start: 20170515
  17. ASPIRIN. [Concomitant]
     Active Substance: ASPIRIN
     Dates: start: 20101230
  18. ATORVASTATIN [Concomitant]
     Active Substance: ATORVASTATIN
     Dates: start: 20170910
  19. SIRAN [Concomitant]

REACTIONS (6)
  - Dysphagia [Unknown]
  - Gastroenteritis [Recovered/Resolved]
  - Diarrhoea [Not Recovered/Not Resolved]
  - Frequent bowel movements [Unknown]
  - Pancytopenia [Unknown]
  - Asthenia [Not Recovered/Not Resolved]

NARRATIVE: CASE EVENT DATE: 201810
